FAERS Safety Report 13024434 (Version 2)
Quarter: 2016Q4

REPORT INFORMATION
  Report Type: Report from Study
  Country: TR (occurrence: TR)
  Receive Date: 20161213
  Receipt Date: 20161219
  Transmission Date: 20170207
  Serious: Yes (Hospitalization, Other)
  Sender: FDA-Public Use
  Company Number: TR-BAXALTA-2016BLT009256

PATIENT
  Age: 19 Year
  Weight: 47 kg

DRUGS (3)
  1. SIPROGUT [Concomitant]
     Indication: OTORRHOEA
     Route: 001
  2. KIOVIG [Suspect]
     Active Substance: HUMAN IMMUNOGLOBULIN G
     Indication: PRIMARY IMMUNODEFICIENCY SYNDROME
     Dosage: 10 G FOR EACH 10 DAYS
     Route: 058
     Dates: start: 20160121, end: 20161031
  3. NORSOL                             /00016202/ [Concomitant]
     Indication: OTORRHOEA

REACTIONS (5)
  - Pyrexia [Unknown]
  - Inappropriate schedule of drug administration [Unknown]
  - Respiratory distress [Recovered/Resolved]
  - Infection [Unknown]
  - Asthenia [Recovered/Resolved]

NARRATIVE: CASE EVENT DATE: 20161031
